FAERS Safety Report 5733870-5 (Version None)
Quarter: 2008Q2

REPORT INFORMATION
  Report Type: 
  Country: None (occurrence: None)
  Receive Date: 20080509
  Receipt Date: 20080430
  Transmission Date: 20081010
  Serious: Yes (Hospitalization, Other)
  Sender: FDA-Public Use
  Company Number: US-ELI_LILLY_AND_COMPANY-US200805000040

PATIENT
  Age: 68 Year
  Sex: Male

DRUGS (4)
  1. HUMULIN R [Suspect]
     Dates: start: 19880101
  2. HUMULIN N [Suspect]
     Dates: start: 19880101
  3. NOVOLIN R [Concomitant]
  4. NOVOLIN N [Concomitant]

REACTIONS (2)
  - AORTIC VALVE DISEASE [None]
  - MITRAL VALVE REPAIR [None]
